FAERS Safety Report 6915027-5 (Version None)
Quarter: 2010Q3

REPORT INFORMATION
  Report Type: 
  Country: None (occurrence: None)
  Receive Date: 20100809
  Receipt Date: 20100705
  Transmission Date: 20110219
  Serious: Yes (Other)
  Sender: FDA-Public Use
  Company Number: BE-GENENTECH-303938

PATIENT

DRUGS (17)
  1. MABTHERA [Suspect]
     Indication: NON-HODGKIN'S LYMPHOMA
     Dosage: UNK
     Dates: start: 20030901
  2. MABTHERA [Suspect]
     Indication: STEM CELL TRANSPLANT
     Dosage: UNK
     Dates: start: 20050104
  3. FLUDARABINE [Suspect]
     Indication: NON-HODGKIN'S LYMPHOMA
     Dosage: UNK
     Dates: start: 20050104
  4. FLUDARABINE [Suspect]
     Indication: STEM CELL TRANSPLANT
  5. ETOPOSIDE [Concomitant]
     Indication: NON-HODGKIN'S LYMPHOMA
     Dosage: UNK
     Dates: start: 20050104
  6. ETOPOSIDE [Concomitant]
     Indication: STEM CELL TRANSPLANT
  7. CYTARABINE [Concomitant]
     Indication: NON-HODGKIN'S LYMPHOMA
     Dosage: UNK
     Dates: start: 20050104
  8. CYTARABINE [Concomitant]
     Indication: STEM CELL TRANSPLANT
  9. MELPHALAN [Concomitant]
     Indication: NON-HODGKIN'S LYMPHOMA
     Dosage: UNK
     Dates: start: 20050104
  10. MELPHALAN [Concomitant]
     Indication: STEM CELL TRANSPLANT
  11. INTERFERON ALFA [Concomitant]
     Indication: NON-HODGKIN'S LYMPHOMA
     Dosage: UNK
     Dates: start: 20030901
  12. CARMUSTINE [Concomitant]
     Indication: NON-HODGKIN'S LYMPHOMA
     Dosage: UNK
     Dates: start: 20050104
  13. CARMUSTINE [Concomitant]
     Indication: STEM CELL TRANSPLANT
  14. MITOXANTRONE [Concomitant]
     Indication: NON-HODGKIN'S LYMPHOMA
     Dosage: UNK
     Dates: start: 20050104
  15. MITOXANTRONE [Concomitant]
     Indication: STEM CELL TRANSPLANT
  16. DEXAMETHASONE [Concomitant]
     Indication: STEM CELL TRANSPLANT
     Dosage: UNK
     Dates: start: 20050104
  17. DEXAMETHASONE [Concomitant]
     Indication: NON-HODGKIN'S LYMPHOMA

REACTIONS (1)
  - PROSTATIC INTRAEPITHELIAL NEOPLASIA [None]
